FAERS Safety Report 9231105 (Version 3)
Quarter: 2013Q2

REPORT INFORMATION
  Report Type: Spontaneous
  Country: US (occurrence: US)
  Receive Date: 20130415
  Receipt Date: 20130507
  Transmission Date: 20140414
  Serious: Yes (Hospitalization, Other)
  Sender: FDA-Public Use
  Company Number: US-JNJFOC-20130403216

PATIENT
  Age: 83 Year
  Sex: Male
  Weight: 83.01 kg

DRUGS (15)
  1. XARELTO [Suspect]
     Indication: CEREBROVASCULAR ACCIDENT PROPHYLAXIS
     Route: 048
     Dates: start: 20121226, end: 201303
  2. XARELTO [Suspect]
     Indication: CEREBROVASCULAR ACCIDENT PROPHYLAXIS
     Route: 048
     Dates: start: 201303, end: 201303
  3. XARELTO [Suspect]
     Indication: ATRIAL FIBRILLATION
     Route: 048
     Dates: start: 20121226, end: 201303
  4. XARELTO [Suspect]
     Indication: ATRIAL FIBRILLATION
     Route: 048
     Dates: start: 201303, end: 201303
  5. ASPIRIN [Suspect]
     Indication: PRODUCT USED FOR UNKNOWN INDICATION
     Route: 065
  6. CRESTOR [Concomitant]
     Indication: HYPERLIPIDAEMIA
     Route: 048
  7. ASPIRIN [Concomitant]
     Indication: ANTIPLATELET THERAPY
     Route: 065
  8. CYMBALTA [Concomitant]
     Indication: DEPRESSION
     Route: 048
  9. XANAX [Concomitant]
     Indication: ANXIETY
     Dosage: AT BEDTIME
     Route: 065
  10. OMEPRAZOLE [Concomitant]
     Route: 048
  11. SUCRALFATE [Concomitant]
     Route: 048
  12. ALPRAZOLAM [Concomitant]
     Route: 048
  13. COUMADIN [Concomitant]
     Route: 048
  14. MULTAQ [Concomitant]
     Route: 065
  15. CARAFATE [Concomitant]
     Route: 065

REACTIONS (5)
  - Gastrointestinal haemorrhage [Recovering/Resolving]
  - Gastritis [Unknown]
  - Gastrooesophageal reflux disease [Unknown]
  - Anaemia [Recovered/Resolved]
  - Hypotension [Recovered/Resolved]
